APPROVED DRUG PRODUCT: DEXAMETHASONE SODIUM PHOSPHATE
Active Ingredient: DEXAMETHASONE SODIUM PHOSPHATE
Strength: EQ 10MG PHOSPHATE/ML
Dosage Form/Route: INJECTABLE;INJECTION
Application: A215654 | Product #002 | TE Code: AP
Applicant: GLAND PHARMA LTD
Approved: Sep 25, 2023 | RLD: No | RS: No | Type: RX